FAERS Safety Report 7490119-3 (Version None)
Quarter: 2011Q2

REPORT INFORMATION
  Report Type: 
  Country: None (occurrence: None)
  Receive Date: 20110519
  Receipt Date: 20110513
  Transmission Date: 20111010
  Serious: No
  Sender: FDA-Public Use
  Company Number: US-PFIZER INC-2011103625

PATIENT
  Sex: Male
  Weight: 136 kg

DRUGS (1)
  1. GENOTROPIN [Suspect]
     Indication: GROWTH HORMONE DEFICIENCY
     Dosage: UNK
     Dates: start: 20050101

REACTIONS (3)
  - FATIGUE [None]
  - OBESITY [None]
  - WEIGHT INCREASED [None]
